FAERS Safety Report 4686731-7 (Version None)
Quarter: 2005Q2

REPORT INFORMATION
  Report Type: 
  Country: None (occurrence: None)
  Receive Date: 20050606
  Receipt Date: 20050519
  Transmission Date: 20051028
  Serious: Yes (Congenital Anomaly)
  Sender: FDA-Public Use
  Company Number: GBS050517448

PATIENT

DRUGS (3)
  1. OLANZAPINE [Suspect]
     Dosage: ORAL
     Route: 048
  2. VENLAFAXINE HCL [Concomitant]
  3. TEMAZEPAM [Concomitant]

REACTIONS (2)
  - DRUG EXPOSURE DURING PREGNANCY [None]
  - GASTROSCHISIS [None]
